FAERS Safety Report 14719077 (Version 3)
Quarter: 2018Q3

REPORT INFORMATION
  Report Type: Spontaneous
  Country: US (occurrence: US)
  Receive Date: 20180405
  Receipt Date: 20180713
  Transmission Date: 20181010
  Serious: No
  Sender: FDA-Public Use
  Company Number: PHEH2018US013026

PATIENT
  Sex: Female

DRUGS (2)
  1. ZOFRAN [Suspect]
     Active Substance: ONDANSETRON HYDROCHLORIDE
     Indication: PRODUCT USED FOR UNKNOWN INDICATION
     Route: 048
  2. ZOFRAN [Suspect]
     Active Substance: ONDANSETRON HYDROCHLORIDE
     Indication: VOMITING IN PREGNANCY
     Dosage: 4 MG, Q8H, PRN
     Route: 042
     Dates: start: 2005, end: 2006

REACTIONS (14)
  - Emotional distress [Unknown]
  - Scoliosis [Unknown]
  - Endometriosis [Unknown]
  - Otitis media acute [Unknown]
  - Anxiety [Unknown]
  - Oral candidiasis [Unknown]
  - Injury [Unknown]
  - Maternal exposure during pregnancy [Unknown]
  - Pelvic pain [Unknown]
  - Depression [Unknown]
  - Upper respiratory tract infection [Unknown]
  - Bronchitis [Unknown]
  - Pharyngitis [Unknown]
  - Product use in unapproved indication [Unknown]
